FAERS Safety Report 9357384 (Version 3)
Quarter: 2013Q3

REPORT INFORMATION
  Report Type: Spontaneous
  Country: US (occurrence: US)
  Receive Date: 20130620
  Receipt Date: 20130725
  Transmission Date: 20140515
  Serious: No
  Sender: FDA-Public Use
  Company Number: US-009507513-1306USA003210

PATIENT
  Sex: Female
  Weight: 88.44 kg

DRUGS (1)
  1. IMPLANON [Suspect]
     Indication: CONTRACEPTION
     Dosage: 1 ROD
     Route: 059
     Dates: start: 20101007, end: 20130604

REACTIONS (2)
  - Weight loss poor [Unknown]
  - Device kink [Recovered/Resolved]
